FAERS Safety Report 24144936 (Version 4)
Quarter: 2024Q4

REPORT INFORMATION
  Report Type: Spontaneous
  Country: JP (occurrence: JP)
  Receive Date: 20240729
  Receipt Date: 20241216
  Transmission Date: 20250115
  Serious: Yes (Hospitalization)
  Sender: ABBVIE
  Company Number: JP-ABBVIE-5852846

PATIENT
  Age: 40 Year
  Sex: Female

DRUGS (1)
  1. RINVOQ [Suspect]
     Active Substance: UPADACITINIB
     Indication: Dermatitis atopic
     Dosage: 15 MILLIGRAM
     Route: 048

REACTIONS (4)
  - Chemokine increased [Recovering/Resolving]
  - Dermatitis atopic [Unknown]
  - Blood immunoglobulin E increased [Unknown]
  - Therapeutic product effect decreased [Unknown]
